FAERS Safety Report 7717824-5 (Version None)
Quarter: 2011Q3

REPORT INFORMATION
  Report Type: 
  Country: None (occurrence: None)
  Receive Date: 20110830
  Receipt Date: 20110817
  Transmission Date: 20111222
  Serious: Yes (Other)
  Sender: FDA-Public Use
  Company Number: US-CELGENEUS-163-21880-11022902

PATIENT
  Sex: Female
  Weight: 104.5 kg

DRUGS (24)
  1. REVLIMID [Suspect]
     Dosage: 10 MILLIGRAM
     Route: 048
     Dates: start: 20100701
  2. SOLU-MEDROL [Concomitant]
     Indication: BONE PAIN
     Dosage: 20 MILLIGRAM
     Route: 065
  3. COD LIVER OIL [Concomitant]
     Route: 048
  4. FLEXERIL [Concomitant]
     Indication: MUSCLE SPASMS
     Dosage: 5 MILLIGRAM
     Route: 048
  5. VELCADE [Concomitant]
     Route: 065
     Dates: start: 20100818
  6. ASPIRIN [Concomitant]
     Route: 065
  7. BISPHOSPHONATE [Concomitant]
     Route: 041
  8. REVLIMID [Suspect]
     Indication: MULTIPLE MYELOMA
     Dosage: 25 MILLIGRAM
     Route: 048
     Dates: start: 20100401
  9. GABAPENTIN [Concomitant]
     Dosage: 300 MILLIGRAM
     Route: 048
  10. TRAZODONE HYDROCHLORIDE [Concomitant]
     Route: 048
  11. VAGIFEM [Concomitant]
     Dosage: 10 MICROGRAM
     Route: 067
  12. BIAXIN [Concomitant]
     Route: 065
     Dates: end: 20100811
  13. PROZAC [Concomitant]
     Dosage: 60 MILLIGRAM
     Route: 048
  14. DEXAMETHASONE [Concomitant]
     Indication: MULTIPLE MYELOMA
     Dosage: 20 MILLIGRAM
     Route: 065
     Dates: start: 20100101
  15. VICODIN [Concomitant]
     Dosage: 5 MG-500 MG
     Route: 048
  16. ATIVAN [Concomitant]
     Dosage: 1 MG/1 OR TABLETS
     Route: 048
  17. VELCADE [Concomitant]
     Route: 065
     Dates: start: 20100101
  18. MELPHALAN [Concomitant]
     Indication: MULTIPLE MYELOMA
     Dosage: 2 MILLIGRAM
     Route: 048
     Dates: start: 20100101
  19. DEXAMETHASONE [Concomitant]
     Dosage: 20 MILLIGRAM
     Route: 065
     Dates: end: 20100811
  20. PREDNISONE [Concomitant]
     Indication: MULTIPLE MYELOMA
     Dosage: 50 MILLIGRAM
     Route: 048
     Dates: start: 20100101
  21. PRILOSEC [Concomitant]
     Dosage: 20 MILLIGRAM
     Route: 048
  22. TESTOSTERONE [Concomitant]
     Route: 067
  23. ALBUTEROL SULFATE AUTOHALER [Concomitant]
     Dosage: 90 MCG/ACTUATION
     Route: 055
  24. AEROSOL INHALER [Concomitant]
     Route: 055

REACTIONS (2)
  - DEEP VEIN THROMBOSIS [None]
  - INJURY [None]
